FAERS Safety Report 23990314 (Version 1)
Quarter: 2024Q2

REPORT INFORMATION
  Report Type: Spontaneous
  Country: US (occurrence: US)
  Receive Date: 20240619
  Receipt Date: 20240619
  Transmission Date: 20240716
  Serious: Yes (Life-Threatening, Other)
  Sender: FDA-Public Use
  Company Number: US-BIOVITRUM-2024-US-008723

PATIENT
  Age: 67 Year
  Sex: Female

DRUGS (1)
  1. VONJO [Suspect]
     Active Substance: PACRITINIB
     Indication: Polycythaemia vera
     Dosage: DAILY
     Route: 048
     Dates: start: 20230216

REACTIONS (3)
  - Compartment syndrome [Unknown]
  - Blood disorder [Unknown]
  - Off label use [Recovered/Resolved]
